FAERS Safety Report 22394948 (Version 1)
Quarter: 2023Q2

REPORT INFORMATION
  Report Type: Spontaneous
  Country: US (occurrence: US)
  Receive Date: 20230601
  Receipt Date: 20230601
  Transmission Date: 20230721
  Serious: No
  Sender: FDA-Public Use
  Company Number: US-APIL-2313098US

PATIENT
  Age: 51 Year
  Sex: Female

DRUGS (2)
  1. VRAYLAR [Suspect]
     Active Substance: CARIPRAZINE
     Indication: Major depression
     Dosage: 1.5 MG, QD
     Route: 048
     Dates: end: 202304
  2. CYMBALTA [Suspect]
     Active Substance: DULOXETINE HYDROCHLORIDE
     Indication: Depression

REACTIONS (2)
  - Hot flush [Recovered/Resolved]
  - Arthralgia [Recovered/Resolved]
